FAERS Safety Report 10534960 (Version 1)
Quarter: 2014Q4

REPORT INFORMATION
  Report Type: Spontaneous
  Country: KR (occurrence: KR)
  Receive Date: 20141022
  Receipt Date: 20141022
  Transmission Date: 20150529
  Serious: Yes (Other)
  Sender: FDA-Public Use
  Company Number: KR-WATSON-2014-22515

PATIENT

DRUGS (6)
  1. ROPIVACAINE (UNKNOWN) [Suspect]
     Active Substance: ROPIVACAINE
     Indication: ANALGESIC THERAPY
     Dosage: 6 MLH
     Route: 064
  2. RITODRINE [Suspect]
     Active Substance: RITODRINE
     Indication: PREMATURE LABOUR
     Dosage: UNK
     Route: 064
  3. CODEINE (UNKNOWN) [Suspect]
     Active Substance: CODEINE
     Indication: ANALGESIC THERAPY
     Dosage: UNK
     Route: 064
  4. FENTANYL (UNKNOWN) [Suspect]
     Active Substance: FENTANYL
     Indication: ANALGESIC THERAPY
     Dosage: 6 GH
     Route: 064
  5. MEPERIDINE HCL [Suspect]
     Active Substance: MEPERIDINE HYDROCHLORIDE
     Indication: ANALGESIC THERAPY
     Dosage: UNK
     Route: 064
  6. PARACETAMOL (UNKNOWN) [Suspect]
     Active Substance: ACETAMINOPHEN
     Indication: ANALGESIC THERAPY
     Dosage: UNK
     Route: 064

REACTIONS (3)
  - Foetal exposure during pregnancy [Unknown]
  - Foetal heart rate deceleration abnormality [Unknown]
  - Premature baby [Not Recovered/Not Resolved]
